FAERS Safety Report 13400846 (Version 1)
Quarter: 2017Q2

REPORT INFORMATION
  Report Type: Spontaneous
  Country: IT (occurrence: IT)
  Receive Date: 20170404
  Receipt Date: 20170404
  Transmission Date: 20170830
  Serious: Yes (Other)
  Sender: FDA-Public Use
  Company Number: IT-TEVA-754846ACC

PATIENT
  Age: 72 Year
  Sex: Female
  Weight: 53 kg

DRUGS (3)
  1. FLUOROURACILE AHCL - 50MG/ML SOLUZIONE INIETTABILE O INFUSIONE [Concomitant]
     Active Substance: FLUOROURACIL
     Indication: BREAST NEOPLASM
     Route: 040
     Dates: start: 20170216, end: 20170321
  2. METOTRESSATO TEVA -25 MG/ML SOLUZIONE INIETTABILE - TEVA ITALIA S.R.L. [Suspect]
     Active Substance: METHOTREXATE SODIUM
     Indication: BREAST NEOPLASM
     Route: 040
     Dates: start: 20170216, end: 20170321
  3. ENDOXAN BAXTER - 1 G POLVERE PER SOLUZIONE INIETTABILE [Concomitant]
     Active Substance: CYCLOPHOSPHAMIDE
     Indication: BREAST NEOPLASM
     Route: 040
     Dates: start: 20170216, end: 20170321

REACTIONS (1)
  - Mucosal inflammation [Not Recovered/Not Resolved]

NARRATIVE: CASE EVENT DATE: 20170321
